FAERS Safety Report 10179228 (Version 1)
Quarter: 2014Q2

REPORT INFORMATION
  Report Type: Spontaneous
  Country: US (occurrence: None)
  Receive Date: 20140515
  Receipt Date: 20140515
  Transmission Date: 20141212
  Serious: Yes (Other)
  Sender: FDA-Public Use
  Company Number: AUR-APL-2014-05526

PATIENT
  Age: 48 Year
  Sex: Female

DRUGS (8)
  1. CEFTRIAXONE [Suspect]
     Indication: PRODUCT USED FOR UNKNOWN INDICATION
  2. ESCITALOPRAM [Suspect]
     Indication: PRODUCT USED FOR UNKNOWN INDICATION
  3. TRAMADOL [Suspect]
     Indication: PRODUCT USED FOR UNKNOWN INDICATION
  4. OXYGEN [Suspect]
     Indication: PRODUCT USED FOR UNKNOWN INDICATION
     Dosage: 30 HBO2 AT 2.4 ATM ABS FOR TWO 45-MIN
  5. ZOLPIDEM (ZOLPIDEM) [Concomitant]
  6. METRONIDAZOLE (METRONIDAZOLE) [Concomitant]
  7. HYDROCODONE ACETAMINOPHEN (VICODIN) [Concomitant]
  8. HYDROMORPHONE (HYDROMORPHONE) [Concomitant]

REACTIONS (6)
  - Generalised tonic-clonic seizure [None]
  - Anxiety [None]
  - Tremor [None]
  - Drug withdrawal convulsions [None]
  - Drug withdrawal syndrome [None]
  - Toxicity to various agents [None]
